FAERS Safety Report 8790212 (Version 1)
Quarter: 2012Q4

REPORT INFORMATION
  Report Type: 
  Country: US (occurrence: US)
  Receive Date: 20120917
  Receipt Date: 20120917
  Transmission Date: 20130627
  Serious: No
  Sender: FDA-Public Use
  Company Number: US-PFIZER INC-2012227409

PATIENT

DRUGS (2)
  1. LYRICA [Suspect]
     Dosage: 100 mg
  2. LYRICA [Suspect]
     Dosage: 75 mg

REACTIONS (1)
  - Swelling [Unknown]
